FAERS Safety Report 9287344 (Version 5)
Quarter: 2014Q1

REPORT INFORMATION
  Report Type: Report from Study
  Country: CA (occurrence: CA)
  Receive Date: 20130514
  Receipt Date: 20140319
  Transmission Date: 20141002
  Serious: Yes (Other)
  Sender: FDA-Public Use
  Company Number: CA-ROCHE-1207168

PATIENT
  Age: 42 Year
  Sex: Female
  Weight: 98 kg

DRUGS (11)
  1. RITUXAN [Suspect]
     Indication: RHEUMATOID ARTHRITIS
     Dosage: MOST RECENT DOSE 28/FEB/2014.
     Route: 042
     Dates: start: 20130308
  2. LYRICA [Concomitant]
  3. NAPROXEN [Concomitant]
  4. VENTOLIN [Concomitant]
  5. CYCLOBENZAPRINE [Concomitant]
  6. PREDNISONE [Concomitant]
  7. ASA [Concomitant]
     Route: 065
  8. DIPHENHYDRAMINE HCL [Concomitant]
     Route: 048
     Dates: start: 20130308
  9. ACETAMINOPHEN [Concomitant]
     Route: 048
     Dates: start: 20130308
  10. METHYLPREDNISOLONE [Concomitant]
     Route: 042
     Dates: start: 20130308
  11. HIZENTRA [Concomitant]

REACTIONS (13)
  - Hepatic enzyme increased [Not Recovered/Not Resolved]
  - Hypogammaglobulinaemia [Not Recovered/Not Resolved]
  - Blood urine present [Unknown]
  - Palpitations [Recovering/Resolving]
  - Influenza [Recovering/Resolving]
  - Nausea [Not Recovered/Not Resolved]
  - Cystitis [Not Recovered/Not Resolved]
  - Gingivitis [Recovered/Resolved]
  - Dizziness [Recovering/Resolving]
  - Rheumatoid arthritis [Recovered/Resolved]
  - Pyrexia [Recovered/Resolved]
  - Infusion related reaction [Unknown]
  - White blood cell count increased [Unknown]
